FAERS Safety Report 24225859 (Version 1)
Quarter: 2024Q3

REPORT INFORMATION
  Report Type: Report from Study
  Country: US (occurrence: None)
  Receive Date: 20240820
  Receipt Date: 20240820
  Transmission Date: 20241016
  Serious: Yes (Hospitalization)
  Sender: ASTRAZENECA
  Company Number: 2022A406220

PATIENT
  Age: 69 Year
  Sex: Female
  Weight: 71.2 kg

DRUGS (1)
  1. FASENRA [Suspect]
     Active Substance: BENRALIZUMAB
     Indication: Asthma
     Route: 058
     Dates: start: 20220307, end: 20221211

REACTIONS (5)
  - Platelet count decreased [Recovered/Resolved]
  - Blood cholesterol abnormal [Unknown]
  - Blood glucose increased [Unknown]
  - Dyspnoea [Unknown]
  - Haemorrhage [Recovered/Resolved]
